FAERS Safety Report 4735915-8 (Version None)
Quarter: 2005Q3

REPORT INFORMATION
  Report Type: 
  Country: None (occurrence: None)
  Receive Date: 20050721
  Receipt Date: 20050524
  Transmission Date: 20060218
  Serious: No
  Sender: FDA-Public Use
  Company Number: 2005SP001017

PATIENT
  Age: 60 Year
  Sex: Female
  Weight: 77.1115 kg

DRUGS (4)
  1. LUNESTA [Suspect]
     Indication: INSOMNIA
     Dosage: 3 MG;HS;ORAL
     Route: 048
     Dates: start: 20050520, end: 20050521
  2. VERAPAMIL [Concomitant]
  3. PREVACID [Concomitant]
  4. CELEBREX [Concomitant]

REACTIONS (2)
  - ABNORMAL DREAMS [None]
  - DYSGEUSIA [None]
